FAERS Safety Report 8367378-8 (Version None)
Quarter: 2012Q2

REPORT INFORMATION
  Report Type: 
  Country: None (occurrence: None)
  Receive Date: 20120517
  Receipt Date: 20111214
  Transmission Date: 20120825
  Serious: Yes (Other)
  Sender: FDA-Public Use
  Company Number: US-GLAXOSMITHKLINE-A0958214A

PATIENT
  Age: 64 Year
  Sex: Female
  Weight: 76.8 kg

DRUGS (21)
  1. SIMVASTATIN [Concomitant]
     Route: 048
     Dates: end: 20110818
  2. OPANA [Concomitant]
  3. VALIUM [Concomitant]
  4. MOUTHWASH [Concomitant]
     Dosage: 10ML FOUR TIMES PER DAY
     Dates: start: 20110711, end: 20120107
  5. GRANISETRON [Concomitant]
     Dosage: 1MG PER DAY
     Route: 042
     Dates: start: 20110720, end: 20110722
  6. PROMETHAZINE HCL [Concomitant]
  7. DEXAMETHASONE [Concomitant]
     Dosage: 4MG FOUR TIMES PER DAY
     Route: 048
     Dates: start: 20110614, end: 20111012
  8. LEVOTHROID [Concomitant]
     Dosage: 25MCG PER DAY
     Route: 048
     Dates: end: 20111026
  9. VITAMIN B6 [Concomitant]
     Dates: end: 20111108
  10. CELEXA [Concomitant]
  11. SENNA-MINT WAF [Concomitant]
  12. POTASSIUM CHLORIDE [Concomitant]
     Dosage: 16MEQ TWICE PER DAY
     Route: 048
  13. BISOPROLOL FUMARATE [Concomitant]
     Dosage: 5MG UNKNOWN
     Route: 048
  14. COLACE [Concomitant]
  15. PHENERGAN [Concomitant]
  16. PRILOSEC [Concomitant]
  17. VITAMIN [Concomitant]
  18. VITAMIN D [Concomitant]
     Route: 048
  19. VOTRIENT [Suspect]
     Indication: RENAL CANCER
     Dosage: 800MG PER DAY
     Route: 065
     Dates: start: 20110630, end: 20111206
  20. DIOVAN [Concomitant]
     Route: 048
     Dates: end: 20111108
  21. SPIRONOLACTONE [Concomitant]

REACTIONS (1)
  - LIVER FUNCTION TEST ABNORMAL [None]
